FAERS Safety Report 8513501 (Version 3)
Quarter: 2013Q3

REPORT INFORMATION
  Report Type: Spontaneous
  Country: US (occurrence: US)
  Receive Date: 20120416
  Receipt Date: 20130826
  Transmission Date: 20140515
  Serious: Yes (Other)
  Sender: FDA-Public Use
  Company Number: US-SANOFI-AVENTIS-2012SA023460

PATIENT
  Age: 69 Year
  Sex: Male

DRUGS (5)
  1. SOLOSTAR [Suspect]
  2. LANTUS SOLOSTAR [Suspect]
  3. LANTUS [Suspect]
     Indication: TYPE 2 DIABETES MELLITUS
     Dosage: DOSE:80 UNIT(S)
     Route: 058
  4. LANTUS [Suspect]
     Indication: TYPE 2 DIABETES MELLITUS
     Dosage: PRODUCT STARTED 5 YEARS AGO?50 UNITS AM AND PM?THERAPY END DATE - ONE MONTH AGO. DOSE:50 UNIT(S)
     Route: 058
  5. NOVOLOG [Suspect]
     Dosage: 15-40 UNITS A DAY
     Route: 065

REACTIONS (6)
  - Macular degeneration [Not Recovered/Not Resolved]
  - Blindness [Not Recovered/Not Resolved]
  - Blood glucose decreased [Unknown]
  - Blood glucose increased [Unknown]
  - Medication error [Unknown]
  - Injection site haemorrhage [Unknown]
